FAERS Safety Report 17121906 (Version 4)
Quarter: 2020Q2

REPORT INFORMATION
  Report Type: Report from Study
  Country: None (occurrence: US)
  Receive Date: 20191206
  Receipt Date: 20200428
  Transmission Date: 20200713
  Serious: Yes (Hospitalization, Other)
  Sender: FDA-Public Use
  Company Number: US-ABBVIE-19K-163-3182444-00

PATIENT
  Age: 16 Year
  Sex: Female

DRUGS (5)
  1. HUMIRA [Suspect]
     Active Substance: ADALIMUMAB
     Route: 058
     Dates: start: 201912, end: 202001
  2. HUMIRA [Suspect]
     Active Substance: ADALIMUMAB
     Indication: CROHN^S DISEASE
     Dosage: DAY 1
     Route: 058
     Dates: start: 2019, end: 2019
  3. HUMIRA [Suspect]
     Active Substance: ADALIMUMAB
     Route: 058
     Dates: start: 202001
  4. HUMIRA [Suspect]
     Active Substance: ADALIMUMAB
     Dosage: DAY 15
     Route: 058
     Dates: start: 2019, end: 2019
  5. HUMIRA [Suspect]
     Active Substance: ADALIMUMAB
     Route: 058
     Dates: start: 20191023, end: 201912

REACTIONS (9)
  - Nasopharyngitis [Recovered/Resolved]
  - Tongue fungal infection [Unknown]
  - Upper airway obstruction [Recovering/Resolving]
  - Urinary tract infection [Unknown]
  - Abnormal faeces [Unknown]
  - Abdominal pain [Unknown]
  - Diarrhoea [Unknown]
  - Hydrocephalus [Unknown]
  - Weight increased [Unknown]

NARRATIVE: CASE EVENT DATE: 201911
